FAERS Safety Report 15482606 (Version 1)
Quarter: 2018Q4

REPORT INFORMATION
  Report Type: Report from Study
  Country: US (occurrence: US)
  Receive Date: 20181010
  Receipt Date: 20181010
  Transmission Date: 20190205
  Serious: Yes (Other)
  Sender: FDA-Public Use
  Company Number: US-IPSEN BIOPHARMACEUTICALS, INC.-2018-11296

PATIENT
  Age: 41 Year
  Sex: Female
  Weight: 85.7 kg

DRUGS (8)
  1. SOMATULINE DEPOT [Suspect]
     Active Substance: LANREOTIDE ACETATE
     Indication: NEUROENDOCRINE TUMOUR
     Dates: end: 20180530
  2. RANITIDINE. [Concomitant]
     Active Substance: RANITIDINE
  3. OCTREOTIDE. [Concomitant]
     Active Substance: OCTREOTIDE
  4. SOMATULINE DEPOT [Suspect]
     Active Substance: LANREOTIDE ACETATE
     Dates: start: 20180713
  5. SANDOSTATIN [Concomitant]
     Active Substance: OCTREOTIDE ACETATE
     Route: 058
  6. TIROSINT [Suspect]
     Active Substance: LEVOTHYROXINE SODIUM
     Indication: THYROID DISORDER
  7. CLARITIN REDI [Concomitant]
     Dosage: 2 TABLETS TWICE A DAY.
     Route: 002
  8. CBD OIL [Concomitant]
     Active Substance: CANNABIDIOL\HERBALS

REACTIONS (11)
  - Chest discomfort [Unknown]
  - Gastric disorder [Unknown]
  - Product dose omission [Unknown]
  - Chest discomfort [Recovered/Resolved]
  - Sensation of foreign body [Recovered/Resolved]
  - Thyroid function test abnormal [Unknown]
  - Inappropriate schedule of product administration [Unknown]
  - Hypersensitivity [Recovered/Resolved]
  - Urticaria [Unknown]
  - Urticaria [Not Recovered/Not Resolved]
  - Intentional dose omission [Unknown]

NARRATIVE: CASE EVENT DATE: 2018
